FAERS Safety Report 7201687-0 (Version None)
Quarter: 2010Q4

REPORT INFORMATION
  Report Type: 
  Country: None (occurrence: None)
  Receive Date: 20101229
  Receipt Date: 20101220
  Transmission Date: 20110411
  Serious: Yes (Other)
  Sender: FDA-Public Use
  Company Number: US-ROCHE-579445

PATIENT
  Sex: Female
  Weight: 73 kg

DRUGS (4)
  1. BEVACIZUMAB [Suspect]
     Indication: NON-SMALL CELL LUNG CANCER
     Dosage: 15 MG/KG, Q3W
     Route: 042
     Dates: start: 20070919, end: 20080530
  2. BEVACIZUMAB [Suspect]
     Dosage: 15 MG/KG, Q3W
     Route: 042
     Dates: start: 20070919, end: 20080530
  3. ERLOTINIB [Suspect]
     Indication: NON-SMALL CELL LUNG CANCER
     Dosage: 150 MG, QD
     Route: 048
     Dates: start: 20071212, end: 20080620
  4. ERLOTINIB [Suspect]
     Dosage: 150 MG, QD
     Route: 048
     Dates: start: 20071212, end: 20080620

REACTIONS (1)
  - MYELODYSPLASTIC SYNDROME [None]
